FAERS Safety Report 15459513 (Version 4)
Quarter: 2019Q1

REPORT INFORMATION
  Report Type: Spontaneous
  Country: AU (occurrence: AU)
  Receive Date: 20181003
  Receipt Date: 20190311
  Transmission Date: 20190417
  Serious: Yes (Other)
  Sender: FDA-Public Use
  Company Number: AU-MYLANLABS-2018M1072290

PATIENT
  Age: 32 Year
  Sex: Male
  Weight: 98.5 kg

DRUGS (19)
  1. CLOZARIL [Suspect]
     Active Substance: CLOZAPINE
     Dosage: 500 MG, PM
     Dates: start: 201702
  2. CLOZARIL [Suspect]
     Active Substance: CLOZAPINE
     Dosage: 425 MG, UNK
  3. CLOZARIL [Suspect]
     Active Substance: CLOZAPINE
     Dosage: 325 MG, UNK
  4. AMISULPRIDE [Suspect]
     Active Substance: AMISULPRIDE
     Indication: PRODUCT USED FOR UNKNOWN INDICATION
     Dosage: 200 MG, BID
  5. CLOZARIL [Suspect]
     Active Substance: CLOZAPINE
     Dosage: 500 MG, PM
     Route: 048
  6. CLOZARIL [Suspect]
     Active Substance: CLOZAPINE
     Dosage: 625 MG, UNK
     Dates: start: 20160915
  7. CLOZARIL [Suspect]
     Active Substance: CLOZAPINE
     Dosage: 550 MG, UNK
     Dates: start: 20180530
  8. ATORVASTATIN [Suspect]
     Active Substance: ATORVASTATIN
     Indication: PRODUCT USED FOR UNKNOWN INDICATION
     Dosage: 40 MG, PM
  9. CLOZARIL [Suspect]
     Active Substance: CLOZAPINE
     Dosage: 500 MG, QD
     Dates: start: 201704
  10. CLOZARIL [Suspect]
     Active Substance: CLOZAPINE
     Dosage: 150 MILLIGRAM
     Route: 048
     Dates: start: 20160915, end: 20190303
  11. OLANZAPINE. [Suspect]
     Active Substance: OLANZAPINE
     Indication: PRODUCT USED FOR UNKNOWN INDICATION
     Dosage: 10 MG, PM
  12. CLOZARIL [Suspect]
     Active Substance: CLOZAPINE
     Dosage: 200 MG, AM
     Route: 048
  13. CLOZARIL [Suspect]
     Active Substance: CLOZAPINE
     Dosage: 600 MG, UNK
     Dates: start: 20180212
  14. CLOZARIL [Suspect]
     Active Substance: CLOZAPINE
     Dosage: 625 MG, PM
     Dates: start: 20180220
  15. ARIPIPRAZOLE. [Suspect]
     Active Substance: ARIPIPRAZOLE
     Indication: PRODUCT USED FOR UNKNOWN INDICATION
     Dosage: 10 MG, QD
  16. ARIPIPRAZOLE. [Suspect]
     Active Substance: ARIPIPRAZOLE
     Dosage: 20 MG, QD
  17. CLOZARIL [Suspect]
     Active Substance: CLOZAPINE
     Indication: SCHIZOPHRENIA
     Dosage: UNK
     Route: 048
  18. CLOZARIL [Suspect]
     Active Substance: CLOZAPINE
     Dosage: 450 MG, PM
     Route: 048
  19. ARIPIPRAZOLE. [Suspect]
     Active Substance: ARIPIPRAZOLE
     Dosage: 10 MG, QD

REACTIONS (22)
  - Cardiomyopathy [Unknown]
  - C-reactive protein increased [Unknown]
  - Blood creatine phosphokinase increased [Not Recovered/Not Resolved]
  - Ventricular hypokinesia [Unknown]
  - Ejection fraction decreased [Not Recovered/Not Resolved]
  - Schizophrenia [Unknown]
  - Sinus tachycardia [Unknown]
  - Mitral valve incompetence [Unknown]
  - Aspartate aminotransferase increased [Unknown]
  - Urinary incontinence [Unknown]
  - Aggression [Unknown]
  - Hypercholesterolaemia [Unknown]
  - Pulmonary valve incompetence [Unknown]
  - Diastolic dysfunction [Unknown]
  - Hyperlipidaemia [Unknown]
  - Blood creatinine decreased [Unknown]
  - Drug ineffective [Unknown]
  - Product dose omission [Unknown]
  - Somnolence [Unknown]
  - Troponin increased [Not Recovered/Not Resolved]
  - Alanine aminotransferase increased [Unknown]
  - Blood pressure increased [Unknown]

NARRATIVE: CASE EVENT DATE: 2016
